FAERS Safety Report 20054726 (Version 1)
Quarter: 2021Q4

REPORT INFORMATION
  Report Type: Spontaneous
  Country: US (occurrence: US)
  Receive Date: 20211110
  Receipt Date: 20211110
  Transmission Date: 20220303
  Serious: Yes (Other)
  Sender: FDA-Public Use
  Company Number: US-AMGEN-USASP2021170733

PATIENT
  Sex: Female

DRUGS (1)
  1. PROLIA [Suspect]
     Active Substance: DENOSUMAB
     Indication: Osteoporosis postmenopausal
     Dosage: 60 MILLIGRAM
     Route: 065

REACTIONS (6)
  - Lumbar vertebral fracture [Unknown]
  - Wrist fracture [Not Recovered/Not Resolved]
  - Fall [Unknown]
  - Eye contusion [Unknown]
  - Bone disorder [Unknown]
  - Balance disorder [Unknown]
